FAERS Safety Report 14593555 (Version 1)
Quarter: 2018Q1

REPORT INFORMATION
  Report Type: Report from Study
  Country: FR (occurrence: FR)
  Receive Date: 20180302
  Receipt Date: 20180302
  Transmission Date: 20180509
  Serious: Yes (Other)
  Sender: FDA-Public Use
  Company Number: FR-PFIZER INC-2018080054

PATIENT
  Age: 11 Year
  Sex: Female

DRUGS (14)
  1. VINCRISTINE SULFATE. [Interacting]
     Active Substance: VINCRISTINE SULFATE
     Indication: ACUTE LYMPHOCYTIC LEUKAEMIA
     Dosage: 1.7 MG, 1X/DAY
     Route: 042
     Dates: start: 20170309, end: 20170309
  2. HYDROCORTISONE. [Interacting]
     Active Substance: HYDROCORTISONE
     Indication: ACUTE LYMPHOCYTIC LEUKAEMIA
     Dosage: 15 MG, 1X/DAY
     Route: 037
     Dates: start: 20170314, end: 20170314
  3. INEXIUM /01479302/ [Concomitant]
     Active Substance: ESOMEPRAZOLE MAGNESIUM
     Indication: GASTRITIS
     Route: 048
  4. CYTARABINE. [Suspect]
     Active Substance: CYTARABINE
     Indication: ACUTE LYMPHOCYTIC LEUKAEMIA
     Dosage: 30 MG, 1X/DAY
     Route: 042
     Dates: start: 20170314, end: 20170314
  5. ONCASPAR [Interacting]
     Active Substance: PEGASPARGASE
     Indication: ACUTE LYMPHOCYTIC LEUKAEMIA
     Dosage: 2900 IU, 1X/DAY
     Route: 042
     Dates: start: 20170313, end: 20170313
  6. DAUNORUBICIN [Interacting]
     Active Substance: DAUNORUBICIN
     Dosage: 34.5 MG, 1X/DAY
     Route: 042
     Dates: start: 20170316, end: 20170316
  7. BACTRIM [Concomitant]
     Active Substance: SULFAMETHOXAZOLE\TRIMETHOPRIM
     Indication: PROPHYLAXIS
     Route: 048
  8. DAUNORUBICIN [Interacting]
     Active Substance: DAUNORUBICIN
     Indication: ACUTE LYMPHOCYTIC LEUKAEMIA
     Dosage: 34.5 MG, 1X/DAY
     Route: 042
     Dates: start: 20170309, end: 20170309
  9. METHOTREXATE SODIUM. [Interacting]
     Active Substance: METHOTREXATE SODIUM
     Indication: ACUTE LYMPHOCYTIC LEUKAEMIA
     Dosage: 15 MG, 1X/DAY
     Route: 037
     Dates: start: 20170314, end: 20170314
  10. METHOTREXATE SODIUM. [Interacting]
     Active Substance: METHOTREXATE SODIUM
     Dosage: 15 MG, 1X/DAY
     Route: 037
     Dates: start: 20170301, end: 20170301
  11. METHYLPREDNISOLONE. [Interacting]
     Active Substance: METHYLPREDNISOLONE
     Indication: ACUTE LYMPHOCYTIC LEUKAEMIA
     Dosage: 70 MG, 1X/DAY
     Route: 048
     Dates: start: 20170309
  12. ONDANSETRON [Concomitant]
     Active Substance: ONDANSETRON
     Indication: PROPHYLAXIS
     Route: 042
  13. VINCRISTINE SULFATE. [Interacting]
     Active Substance: VINCRISTINE SULFATE
     Dosage: 1.7 MG, 1X/DAY
     Route: 042
     Dates: start: 20170316, end: 20170316
  14. FORLAX [Concomitant]
     Active Substance: POLYETHYLENE GLYCOL 4000
     Indication: CONSTIPATION
     Route: 048

REACTIONS (2)
  - Hypofibrinogenaemia [Recovered/Resolved]
  - Potentiating drug interaction [Unknown]

NARRATIVE: CASE EVENT DATE: 20170320
